FAERS Safety Report 4469401-X (Version None)
Quarter: 2004Q4

REPORT INFORMATION
  Report Type: 
  Country: None (occurrence: None)
  Receive Date: 20041008
  Receipt Date: 20040525
  Transmission Date: 20050328
  Serious: No
  Sender: FDA-Public Use
  Company Number: US-BRISTOL-MYERS SQUIBB COMPANY-12596680

PATIENT
  Age: 84 Year
  Sex: Female
  Weight: 59 kg

DRUGS (5)
  1. AVAPRO [Suspect]
     Indication: HYPERTENSION
     Dosage: 150MG EACH MORNING W/ BREAKFAST
     Route: 048
     Dates: start: 20040523
  2. SYNTHROID [Concomitant]
  3. FOSAMAX [Concomitant]
  4. AMBIEN [Concomitant]
  5. FOLIC ACID [Concomitant]

REACTIONS (2)
  - BLOOD PRESSURE FLUCTUATION [None]
  - HEADACHE [None]
